FAERS Safety Report 4974302-4 (Version None)
Quarter: 2006Q2

REPORT INFORMATION
  Report Type: 
  Country: None (occurrence: None)
  Receive Date: 20060417
  Receipt Date: 20060127
  Transmission Date: 20061013
  Serious: Yes (Hospitalization, Other)
  Sender: FDA-Public Use
  Company Number: US-MERCK-0602USA00052

PATIENT
  Age: 62 Year
  Sex: Female

DRUGS (1)
  1. VIOXX [Suspect]
     Indication: OSTEOARTHRITIS
     Route: 048
     Dates: start: 20020601

REACTIONS (24)
  - ARTERIOSCLEROSIS [None]
  - BACK PAIN [None]
  - CEREBROVASCULAR ACCIDENT [None]
  - CHRONIC OBSTRUCTIVE PULMONARY DISEASE [None]
  - CORONARY ARTERY DISEASE [None]
  - ESSENTIAL HYPERTENSION [None]
  - FALL [None]
  - HEAD INJURY [None]
  - HEADACHE [None]
  - HEMIPARESIS [None]
  - INFLUENZA [None]
  - INSOMNIA [None]
  - MALAISE [None]
  - MUSCLE SPASMS [None]
  - MYALGIA [None]
  - MYOCARDIAL INFARCTION [None]
  - NECK PAIN [None]
  - OBESITY [None]
  - PERIPHERAL VASCULAR DISORDER [None]
  - PNEUMONIA [None]
  - SYNCOPE [None]
  - THROMBOSIS [None]
  - TRANSIENT ISCHAEMIC ATTACK [None]
  - TREMOR [None]
